FAERS Safety Report 5214225-9 (Version None)
Quarter: 2007Q1

REPORT INFORMATION
  Report Type: 
  Country: None (occurrence: None)
  Receive Date: 20070122
  Receipt Date: 20070117
  Transmission Date: 20070707
  Serious: Yes (Hospitalization)
  Sender: FDA-Public Use
  Company Number: 2007SE00303

PATIENT
  Age: 44 Year
  Sex: Male
  Weight: 61 kg

DRUGS (6)
  1. KENZEN 4 MG [Suspect]
     Indication: HYPERTENSION
     Route: 048
     Dates: start: 20040101
  2. DEPAKENE [Suspect]
     Indication: EPILEPSY
     Route: 048
     Dates: start: 19960101
  3. TEGRETOL [Suspect]
     Indication: EPILEPSY
     Route: 048
     Dates: start: 19960101
  4. URBANYL [Suspect]
     Indication: EPILEPSY
     Route: 048
     Dates: start: 19960101
  5. SINGULAIR [Suspect]
     Indication: ASTHMA
     Route: 048
     Dates: start: 20040101
  6. DESLORATADINE [Suspect]
     Indication: RHINITIS
     Route: 048
     Dates: start: 20061117, end: 20061123

REACTIONS (6)
  - ALANINE AMINOTRANSFERASE INCREASED [None]
  - BRADYCARDIA [None]
  - CHOLINERGIC SYNDROME [None]
  - GAMMA-GLUTAMYLTRANSFERASE INCREASED [None]
  - HYPOTHERMIA [None]
  - MIOSIS [None]
